FAERS Safety Report 10475819 (Version 1)
Quarter: 2014Q3

REPORT INFORMATION
  Report Type: Spontaneous
  Country: US (occurrence: US)
  Receive Date: 20140925
  Receipt Date: 20140925
  Transmission Date: 20150326
  Serious: No
  Sender: FDA-Public Use
  Company Number: US-GLAXOSMITHKLINE-A1078082A

PATIENT

DRUGS (3)
  1. MEKINIST [Suspect]
     Active Substance: TRAMETINIB DIMETHYL SULFOXIDE
  2. TAFINLAR [Suspect]
     Active Substance: DABRAFENIB MESYLATE
  3. RADIATION [Suspect]
     Active Substance: RADIATION THERAPY

REACTIONS (1)
  - Aphasia [Unknown]

NARRATIVE: CASE EVENT DATE: 20140613
